FAERS Safety Report 21323018 (Version 1)
Quarter: 2022Q3

REPORT INFORMATION
  Report Type: Spontaneous
  Country: JP (occurrence: JP)
  Receive Date: 20220912
  Receipt Date: 20220912
  Transmission Date: 20221026
  Serious: Yes (Other)
  Sender: FDA-Public Use
  Company Number: JP-MSD-M2022-37712

PATIENT
  Age: 71 Year
  Sex: Male

DRUGS (3)
  1. KEYTRUDA [Suspect]
     Active Substance: PEMBROLIZUMAB
     Indication: Lung squamous cell carcinoma stage II
     Dosage: 200 MILLIGRAM, Q3W
     Route: 041
     Dates: start: 20211213, end: 2022
  2. CARBOPLATIN [Concomitant]
     Active Substance: CARBOPLATIN
     Indication: Lung squamous cell carcinoma stage II
     Dosage: UNK
     Route: 065
     Dates: start: 20211213, end: 2022
  3. PACLITAXEL [Concomitant]
     Active Substance: PACLITAXEL
     Indication: Lung squamous cell carcinoma stage II
     Dosage: UNK
     Route: 065
     Dates: start: 20211213, end: 2022

REACTIONS (2)
  - Pulmonary toxicity [Unknown]
  - Lung opacity [Unknown]

NARRATIVE: CASE EVENT DATE: 20220607
